FAERS Safety Report 20011291 (Version 1)
Quarter: 2021Q4

REPORT INFORMATION
  Report Type: Spontaneous
  Country: US (occurrence: US)
  Receive Date: 20211029
  Receipt Date: 20211029
  Transmission Date: 20220303
  Serious: Yes (Life-Threatening, Hospitalization)
  Sender: FDA-Public Use
  Company Number: US-JNJFOC-20211039631

PATIENT
  Age: 31 Year
  Sex: Male
  Weight: 85 kg

DRUGS (1)
  1. ACETAMINOPHEN [Suspect]
     Active Substance: ACETAMINOPHEN
     Indication: Suicide attempt
     Dosage: SINGLE TOTAL DOSE 50GM (50000 MG) OF ACETAMINOPHEN AT 05:00
     Route: 048
     Dates: start: 19981004, end: 19981004

REACTIONS (9)
  - Suicide attempt [Recovered/Resolved]
  - Brain oedema [Recovered/Resolved]
  - Brain oedema [Recovered/Resolved]
  - Splenomegaly [Recovered/Resolved]
  - Pneumococcal infection [Recovered/Resolved]
  - Lung infiltration [Recovered/Resolved]
  - Blood creatinine increased [Recovered/Resolved]
  - Acute hepatic failure [Recovered/Resolved]
  - Intentional overdose [Recovered/Resolved]
